FAERS Safety Report 16334398 (Version 2)
Quarter: 2019Q3

REPORT INFORMATION
  Report Type: Spontaneous
  Country: DK (occurrence: DK)
  Receive Date: 20190520
  Receipt Date: 20190710
  Transmission Date: 20191004
  Serious: Yes (Death, Other)
  Sender: FDA-Public Use
  Company Number: PHHY2017DK115703

PATIENT
  Age: 36 Year
  Sex: Female

DRUGS (5)
  1. CABERGOLINE. [Suspect]
     Active Substance: CABERGOLINE
     Indication: GALACTORRHOEA
  2. CABERGOLINE. [Suspect]
     Active Substance: CABERGOLINE
     Indication: HYPERPROLACTINAEMIA
  3. PARLODEL [Suspect]
     Active Substance: BROMOCRIPTINE MESYLATE
     Indication: HYPERPROLACTINAEMIA
     Dosage: 2.5 MG, QD (IN TOTAL APPROXIMATELY 900 MG)
     Route: 065
     Dates: start: 20081210
  4. CABERGOLINE. [Suspect]
     Active Substance: CABERGOLINE
     Indication: PROLACTIN-PRODUCING PITUITARY TUMOUR
     Dosage: 0.5 MG, QW (160 MG IN TOTAL)
     Route: 065
  5. PARLODEL [Suspect]
     Active Substance: BROMOCRIPTINE MESYLATE
     Indication: PROLACTIN-PRODUCING PITUITARY TUMOUR
     Dosage: 1.25 MG, BID
     Route: 048

REACTIONS (9)
  - Cardiac murmur [Unknown]
  - Pulmonary hypertension [Not Recovered/Not Resolved]
  - Breath sounds abnormal [Unknown]
  - Arterial haemorrhage [Fatal]
  - Pulmonary artery stenosis [Unknown]
  - Pulmonary artery occlusion [Unknown]
  - Pulmonary function test decreased [Unknown]
  - Pulmonary fibrosis [Unknown]
  - Mediastinal fibrosis [Not Recovered/Not Resolved]

NARRATIVE: CASE EVENT DATE: 201402
